FAERS Safety Report 8273778-7 (Version None)
Quarter: 2012Q2

REPORT INFORMATION
  Report Type: 
  Country: None (occurrence: None)
  Receive Date: 20120411
  Receipt Date: 20120402
  Transmission Date: 20120825
  Serious: Yes (Other)
  Sender: FDA-Public Use
  Company Number: US-PERRIGO-12US000437

PATIENT
  Sex: Male
  Weight: 70.295 kg

DRUGS (1)
  1. ACETAMINOPHEN [Suspect]
     Indication: BACK PAIN
     Dosage: 1000 MG, SINGLE
     Route: 048
     Dates: start: 20120118, end: 20120118

REACTIONS (1)
  - CONFUSIONAL STATE [None]
